FAERS Safety Report 6388929-9 (Version None)
Quarter: 2009Q4

REPORT INFORMATION
  Report Type: 
  Country: None (occurrence: None)
  Receive Date: 20091005
  Receipt Date: 20090925
  Transmission Date: 20100525
  Serious: Yes (Hospitalization)
  Sender: FDA-Public Use
  Company Number: US-MERCK-0909USA04135M

PATIENT
  Age: 32 Year
  Sex: Female
  Weight: 117 kg

DRUGS (4)
  1. JANUVIA [Suspect]
     Route: 048
  2. BLACK COHOSH [Concomitant]
     Route: 065
  3. VITAMINS (UNSPECIFIED) [Concomitant]
     Route: 065
  4. TYLENOL (CAPLET) [Concomitant]
     Route: 065

REACTIONS (9)
  - ABDOMINAL PAIN UPPER [None]
  - BLOOD GALACTOSE ABNORMAL [None]
  - DRUG EXPOSURE DURING PREGNANCY [None]
  - PELVIC PAIN [None]
  - STREPTOCOCCUS TEST POSITIVE [None]
  - URETERIC DILATATION [None]
  - UTERINE SPASM [None]
  - VAGINAL HAEMORRHAGE [None]
  - VULVOVAGINAL PAIN [None]
